FAERS Safety Report 4758681-9 (Version None)
Quarter: 2005Q3

REPORT INFORMATION
  Report Type: 
  Country: None (occurrence: None)
  Receive Date: 20050826
  Receipt Date: 20050817
  Transmission Date: 20060218
  Serious: Yes (Death, Hospitalization, Other)
  Sender: FDA-Public Use
  Company Number: 2005093807

PATIENT
  Sex: Female

DRUGS (16)
  1. BEXTRA [Suspect]
     Indication: SERONEGATIVE ARTHRITIS
     Dosage: (1 IN 1 D),
     Dates: end: 20050101
  2. BEXTRA [Suspect]
     Indication: SYSTEMIC LUPUS ERYTHEMATOSUS
     Dosage: (1 IN 1 D),
     Dates: end: 20050101
  3. DIAMOX [Suspect]
     Indication: ILL-DEFINED DISORDER
  4. ZOCOR [Suspect]
     Indication: ILL-DEFINED DISORDER
  5. DICLOFENAC SODIUM [Suspect]
     Indication: ILL-DEFINED DISORDER
  6. PROMETHAZINE [Suspect]
     Indication: ILL-DEFINED DISORDER
     Dosage: (AS NECESSARY),
  7. CYMBALTA [Concomitant]
  8. NEURONTIN [Concomitant]
  9. KLONOPIN [Concomitant]
  10. ESTRACE [Concomitant]
  11. FLEXERIL [Concomitant]
  12. PERCOGESIC (PARACETAMOL, PHENYLTOLOXAMINE CITRATE) [Concomitant]
  13. PREVACID [Concomitant]
  14. DILANTIN [Concomitant]
  15. DILAUDID [Concomitant]
  16. ACETYLSALICYLIC ACID SRT [Concomitant]

REACTIONS (52)
  - ALANINE AMINOTRANSFERASE INCREASED [None]
  - ARTHROPATHY [None]
  - ASPARTATE AMINOTRANSFERASE INCREASED [None]
  - ASTHENIA [None]
  - ATRIAL THROMBOSIS [None]
  - BENIGN INTRACRANIAL HYPERTENSION [None]
  - BLOOD PRESSURE DIASTOLIC DECREASED [None]
  - BRAIN OEDEMA [None]
  - CARDIAC DISORDER [None]
  - CEREBRAL INFARCTION [None]
  - CEREBROVASCULAR ACCIDENT [None]
  - CHILLS [None]
  - CHROMATURIA [None]
  - CONVULSION [None]
  - DIARRHOEA [None]
  - DILATATION ATRIAL [None]
  - DILATATION VENTRICULAR [None]
  - DISCOMFORT [None]
  - DIZZINESS [None]
  - DRUG EFFECT DECREASED [None]
  - DRUG INEFFECTIVE [None]
  - EMBOLIC STROKE [None]
  - EYE DISORDER [None]
  - FACIAL PALSY [None]
  - FALL [None]
  - FLUSHING [None]
  - HAEMATOMA [None]
  - HYPERGLYCAEMIA [None]
  - HYPERHIDROSIS [None]
  - HYPERLIPIDAEMIA [None]
  - INTRACARDIAC THROMBUS [None]
  - ISCHAEMIC STROKE [None]
  - MALAISE [None]
  - METABOLIC ACIDOSIS [None]
  - NERVOUS SYSTEM DISORDER [None]
  - ORAL INTAKE REDUCED [None]
  - PERIORBITAL HAEMATOMA [None]
  - PULMONARY EMBOLISM [None]
  - PULMONARY HYPERTENSION [None]
  - RENAL FAILURE [None]
  - RESPIRATORY TRACT INFECTION [None]
  - RIGHT VENTRICULAR FAILURE [None]
  - SCOTOMA [None]
  - SLEEP APNOEA SYNDROME [None]
  - THROMBOSIS [None]
  - TRANSIENT ISCHAEMIC ATTACK [None]
  - TRICUSPID VALVE INCOMPETENCE [None]
  - URINARY TRACT DISORDER [None]
  - VIRAL INFECTION [None]
  - VOMITING [None]
  - WEIGHT DECREASED [None]
  - WHEEZING [None]
